FAERS Safety Report 6426108-7 (Version None)
Quarter: 2009Q4

REPORT INFORMATION
  Report Type: 
  Country: None (occurrence: None)
  Receive Date: 20091104
  Receipt Date: 20091029
  Transmission Date: 20100525
  Serious: Yes (Hospitalization, Other)
  Sender: FDA-Public Use
  Company Number: GB-ASTRAZENECA-2009GB00415

PATIENT
  Sex: Male

DRUGS (3)
  1. SEROQUEL XR [Suspect]
     Indication: MAJOR DEPRESSION
     Route: 048
     Dates: start: 20081201
  2. SEROQUEL XR [Suspect]
     Route: 048
  3. CIPRALEX [Concomitant]
     Route: 065

REACTIONS (2)
  - ANAEMIA [None]
  - NEUTROPENIA [None]
